FAERS Safety Report 17970407 (Version 2)
Quarter: 2020Q3

REPORT INFORMATION
  Report Type: Spontaneous
  Country: TW (occurrence: TW)
  Receive Date: 20200701
  Receipt Date: 20200804
  Transmission Date: 20201103
  Serious: Yes (Hospitalization, Other)
  Sender: FDA-Public Use
  Company Number: TW-AMGEN-TWNSP2020102968

PATIENT
  Age: 70 Year
  Sex: Female

DRUGS (2)
  1. ENBREL [Suspect]
     Active Substance: ETANERCEPT
     Indication: RHEUMATOID ARTHRITIS
     Dosage: 25 MG, 2X/WEEK (ENBREL 25MG BIW PFS)
     Route: 065
     Dates: start: 20120522
  2. ENBREL [Suspect]
     Active Substance: ETANERCEPT
     Dosage: 25 MG, UNK (ENBREL 25MG Q4D PFS, SC NOW)
     Route: 058
     Dates: start: 20200623, end: 20200623

REACTIONS (2)
  - Off label use [Unknown]
  - Osteoarthritis [Recovering/Resolving]
